FAERS Safety Report 18331321 (Version 1)
Quarter: 2020Q3

REPORT INFORMATION
  Report Type: Spontaneous
  Country: RU (occurrence: RU)
  Receive Date: 20200930
  Receipt Date: 20200930
  Transmission Date: 20201103
  Serious: Yes (Other)
  Sender: FDA-Public Use
  Company Number: RU-EISAI MEDICAL RESEARCH-EC-2020-081047

PATIENT
  Age: 18 Year
  Sex: Female
  Weight: 60 kg

DRUGS (4)
  1. FYCOMPA [Suspect]
     Active Substance: PERAMPANEL
     Indication: EPILEPSY
     Route: 048
     Dates: start: 20180501, end: 20191001
  2. DEPAKINE CHRONO [Concomitant]
     Active Substance: VALPROATE SODIUM
     Indication: EPILEPSY
     Dosage: DOSE AND FREQUENCY UNKNOWN
     Route: 048
     Dates: start: 20170101
  3. ZONEGRAN [Concomitant]
     Active Substance: ZONISAMIDE
     Indication: EPILEPSY
     Route: 048
     Dates: start: 20170101
  4. TRILEPTAL [Concomitant]
     Active Substance: OXCARBAZEPINE
     Indication: EPILEPSY
     Dosage: DOSE AND FREQUENCY UNKNOWN
     Route: 048
     Dates: start: 20190101

REACTIONS (2)
  - Drug ineffective [Recovering/Resolving]
  - Aggression [Recovering/Resolving]

NARRATIVE: CASE EVENT DATE: 20180501
